FAERS Safety Report 4564934-X (Version None)
Quarter: 2005Q1

REPORT INFORMATION
  Report Type: 
  Country: None (occurrence: None)
  Receive Date: 20050131
  Receipt Date: 20050119
  Transmission Date: 20050727
  Serious: Yes (Hospitalization)
  Sender: FDA-Public Use
  Company Number: JP-JNJFOC-20040908285

PATIENT
  Sex: Male
  Weight: 55.8 kg

DRUGS (7)
  1. REMICADE [Suspect]
     Route: 042
  2. REMICADE [Suspect]
     Route: 042
  3. REMICADE [Suspect]
     Indication: CROHN'S DISEASE
     Route: 042
  4. PENTASA [Concomitant]
     Indication: CROHN'S DISEASE
     Route: 049
  5. EXCELASE [Concomitant]
     Indication: CROHN'S DISEASE
     Route: 049
  6. LAC B [Concomitant]
     Indication: CROHN'S DISEASE
     Route: 049
  7. RACOL [Concomitant]
     Indication: CROHN'S DISEASE
     Route: 049

REACTIONS (2)
  - PYREXIA [None]
  - URINARY TRACT INFECTION [None]
